FAERS Safety Report 16557174 (Version 1)
Quarter: 2019Q3

REPORT INFORMATION
  Report Type: Spontaneous
  Country: US (occurrence: US)
  Receive Date: 20190529
  Receipt Date: 20190529
  Transmission Date: 20191004
  Serious: No
  Sender: FDA-Public Use
  Company Number: None

PATIENT
  Sex: Male

DRUGS (1)
  1. PIPERACILLIN/TAZOBACTAM [Suspect]
     Active Substance: PIPERACILLIN SODIUM\TAZOBACTAM SODIUM
     Indication: THROMBOPHLEBITIS SEPTIC
     Dosage: ?          OTHER FREQUENCY:Q 8 ;?
     Route: 042
     Dates: start: 20190515

REACTIONS (1)
  - Rash [None]
